FAERS Safety Report 9841849 (Version 1)
Quarter: 2014Q1

REPORT INFORMATION
  Report Type: Spontaneous
  Country: US (occurrence: US)
  Receive Date: 20140124
  Receipt Date: 20140124
  Transmission Date: 20141002
  Serious: No
  Sender: FDA-Public Use
  Company Number: US-BAYER-2014-007510

PATIENT
  Age: 71 Year
  Sex: Female

DRUGS (2)
  1. CLIMARA [Suspect]
     Dosage: 0.1 MG, UNK
     Dates: start: 1983
  2. PREMARIN [Concomitant]
     Dosage: UNK
     Dates: start: 198305

REACTIONS (2)
  - Application site erythema [None]
  - Pruritus [None]
